FAERS Safety Report 22247314 (Version 3)
Quarter: 2023Q2

REPORT INFORMATION
  Report Type: Report from Study
  Country: US (occurrence: US)
  Receive Date: 20230425
  Receipt Date: 20230602
  Transmission Date: 20230721
  Serious: Yes (Other)
  Sender: FDA-Public Use
  Company Number: US-JAZZ PHARMACEUTICALS-2022-US-029828

PATIENT
  Sex: Female

DRUGS (20)
  1. XYWAV [Suspect]
     Active Substance: CALCIUM OXYBATE\MAGNESIUM OXYBATE\POTASSIUM OXYBATE\SODIUM OXYBATE
     Indication: Narcolepsy
     Dosage: UNK
  2. XYWAV [Suspect]
     Active Substance: CALCIUM OXYBATE\MAGNESIUM OXYBATE\POTASSIUM OXYBATE\SODIUM OXYBATE
     Indication: Cataplexy
     Dosage: FIRST DOSE 3 GRAM AND SECOND DOSE 2.5 GRAM
     Route: 048
  3. XYWAV [Suspect]
     Active Substance: CALCIUM OXYBATE\MAGNESIUM OXYBATE\POTASSIUM OXYBATE\SODIUM OXYBATE
     Indication: Somnolence
  4. ATORVASTATIN [Suspect]
     Active Substance: ATORVASTATIN
     Indication: Product used for unknown indication
     Dosage: 5 MILLIGRAM
     Dates: start: 20230508
  5. LOSARTAN POTASSIUM [Suspect]
     Active Substance: LOSARTAN POTASSIUM
     Indication: Product used for unknown indication
     Dosage: UNK
     Dates: start: 20230501
  6. MINERALS\VITAMINS [Concomitant]
     Active Substance: MINERALS\VITAMINS
     Dosage: UNK UNK, QD
     Dates: start: 20151019
  7. CINNAMON [CINNAMOMUM VERUM] [Concomitant]
     Dosage: UNK UNK, QD
     Dates: start: 20151019
  8. DIETARY SUPPLEMENT\HERBALS\MILK THISTLE [Concomitant]
     Active Substance: MILK THISTLE
     Dosage: UNK UNK, QD
     Dates: start: 20151019
  9. FISH OIL [Concomitant]
     Active Substance: FISH OIL
     Dosage: UNK UNK, QD
     Dates: start: 20151019
  10. DIETARY SUPPLEMENT [Concomitant]
     Active Substance: DIETARY SUPPLEMENT
     Dosage: CAPLET
     Dates: start: 20151019
  11. AMOXICILLIN\CLAVULANIC ACID [Concomitant]
     Active Substance: AMOXICILLIN\CLAVULANIC ACID
     Dosage: UNK
     Dates: start: 20180105
  12. CORICIDIN HBP COUGH AND COLD [Concomitant]
     Active Substance: CHLORPHENIRAMINE MALEATE\DEXTROMETHORPHAN HYDROBROMIDE
     Dosage: UNK
     Dates: start: 20190723
  13. MODAFINIL [Concomitant]
     Active Substance: MODAFINIL
     Dosage: UNK
     Dates: start: 20170928
  14. DOCUSATE SODIUM [DOCUSATE SODIUM;SENNOSIDE A+B] [Concomitant]
     Dosage: UNK
     Dates: start: 20210925
  15. ASPIRIN [Concomitant]
     Active Substance: ASPIRIN
     Indication: Product used for unknown indication
     Dosage: UNK
  16. HYDROCHLOROTHIAZIDE\LOSARTAN [Concomitant]
     Active Substance: HYDROCHLOROTHIAZIDE\LOSARTAN
     Indication: Product used for unknown indication
     Dosage: UNK
  17. LIDOCAINE [Concomitant]
     Active Substance: LIDOCAINE
     Indication: Product used for unknown indication
     Dosage: UNK
  18. PROVIGIL [Concomitant]
     Active Substance: MODAFINIL
     Indication: Product used for unknown indication
     Dosage: UNK
  19. VITAMIN D3 [Concomitant]
     Active Substance: CHOLECALCIFEROL
     Indication: Product used for unknown indication
     Dosage: UNK
     Dates: start: 20230508
  20. LOSARTAN AND HYDROCHLOROTHIAZIDE [Concomitant]
     Active Substance: HYDROCHLOROTHIAZIDE\LOSARTAN POTASSIUM
     Indication: Product used for unknown indication
     Dosage: UNK
     Dates: start: 20130801

REACTIONS (8)
  - Surgery [Unknown]
  - Facial paresis [Unknown]
  - Swelling face [Unknown]
  - Stress [Unknown]
  - Sciatica [Unknown]
  - Muscle spasms [Unknown]
  - Unevaluable event [Unknown]
  - Product prescribing error [Unknown]
